FAERS Safety Report 10242459 (Version 2)
Quarter: 2014Q3

REPORT INFORMATION
  Report Type: Report from Study
  Country: MX (occurrence: MX)
  Receive Date: 20140617
  Receipt Date: 20140722
  Transmission Date: 20150326
  Serious: Yes (Other)
  Sender: FDA-Public Use
  Company Number: PHHY2014MX074729

PATIENT
  Age: 65 Year
  Sex: Female

DRUGS (4)
  1. DIOVAN [Suspect]
     Active Substance: VALSARTAN
     Indication: HYPERTENSION
     Dosage: UNK UKN (320 MG), UNK
  2. DIOVAN [Suspect]
     Active Substance: VALSARTAN
     Dosage: UNK UKN (320 MG), UNK
     Dates: end: 201402
  3. DIOVAN [Suspect]
     Active Substance: VALSARTAN
     Dosage: 2 DF (80 MG), DAILY
  4. DIOVAN [Suspect]
     Active Substance: VALSARTAN
     Dosage: 4 DF (80 MG), DAILY
     Route: 048
     Dates: start: 200606

REACTIONS (7)
  - Spinal disorder [Recovered/Resolved]
  - Oedema peripheral [Unknown]
  - Drug ineffective [Recovered/Resolved]
  - Cataract [Recovered/Resolved]
  - Renal disorder [Unknown]
  - Renal impairment [Unknown]
  - Hypertension [Recovered/Resolved]
